FAERS Safety Report 8847874 (Version 2)
Quarter: 2012Q4

REPORT INFORMATION
  Report Type: 
  Country: US (occurrence: US)
  Receive Date: 20121018
  Receipt Date: 20121026
  Transmission Date: 20130627
  Serious: No
  Sender: FDA-Public Use
  Company Number: US-VERTEX PHARMACEUTICAL INC.-2012-022696

PATIENT
  Age: 58 Year
  Sex: Female
  Weight: 92.52 kg

DRUGS (3)
  1. INCIVEK [Suspect]
     Indication: HEPATITIS C
     Dosage: 750 mg, tid
     Route: 048
     Dates: start: 20120926, end: 20121023
  2. RIBAVIRIN [Suspect]
     Indication: HEPATITIS C
     Dosage: 600 mg AM, 400 mg PM
     Route: 048
     Dates: start: 20120926, end: 20121023
  3. PEGASYS [Suspect]
     Indication: HEPATITIS C
     Dosage: 180 ?g, UNK
     Route: 058
     Dates: start: 20120926, end: 20121023

REACTIONS (3)
  - Abdominal distension [Not Recovered/Not Resolved]
  - Adverse event [Not Recovered/Not Resolved]
  - Nausea [Not Recovered/Not Resolved]
